FAERS Safety Report 23068784 (Version 3)
Quarter: 2024Q2

REPORT INFORMATION
  Report Type: Report from Study
  Country: US (occurrence: US)
  Receive Date: 20231016
  Receipt Date: 20240408
  Transmission Date: 20240716
  Serious: Yes (Other)
  Sender: FDA-Public Use
  Company Number: US-MYLANLABS-2023M1108317

PATIENT
  Age: 39 Year
  Sex: Female
  Weight: 131.54 kg

DRUGS (3)
  1. GLATIRAMER ACETATE [Suspect]
     Active Substance: GLATIRAMER ACETATE
     Indication: Multiple sclerosis
     Dosage: 40 MILLIGRAM, Q2W
     Route: 058
  2. GLATIRAMER ACETATE [Suspect]
     Active Substance: GLATIRAMER ACETATE
     Dosage: 40 MILLIGRAM, Q3W
     Route: 058
  3. GLATIRAMER ACETATE [Suspect]
     Active Substance: GLATIRAMER ACETATE
     Dosage: 40 MILLIGRAM, 3XW
     Route: 058

REACTIONS (13)
  - Multiple sclerosis [Unknown]
  - Gastroenteritis viral [Unknown]
  - Injection site pain [Unknown]
  - Injection site haemorrhage [Unknown]
  - Abdominal pain [Unknown]
  - Fatigue [Unknown]
  - Hypersensitivity [Unknown]
  - Cough [Unknown]
  - Lack of injection site rotation [Unknown]
  - Nasopharyngitis [Unknown]
  - Asthma [Unknown]
  - Illness [Recovered/Resolved]
  - Off label use [Unknown]

NARRATIVE: CASE EVENT DATE: 20240301
